FAERS Safety Report 7824964-9 (Version None)
Quarter: 2011Q4

REPORT INFORMATION
  Report Type: 
  Country: None (occurrence: None)
  Receive Date: 20111019
  Receipt Date: 20110426
  Transmission Date: 20120403
  Serious: No
  Sender: FDA-Public Use
  Company Number: US-BRISTOL-MYERS SQUIBB COMPANY-15611742

PATIENT
  Age: 78 Year
  Sex: Female

DRUGS (4)
  1. LIPITOR [Concomitant]
  2. POTASSIUM [Concomitant]
  3. AVALIDE [Suspect]
     Indication: HYPERTENSION
     Dosage: 1DF= 300/12.5MG TABS.
     Dates: start: 20050624
  4. MECLIZINE [Concomitant]

REACTIONS (3)
  - TREMOR [None]
  - INNER EAR DISORDER [None]
  - DIZZINESS [None]
